FAERS Safety Report 7245620-4 (Version None)
Quarter: 2011Q1

REPORT INFORMATION
  Report Type: 
  Country: None (occurrence: None)
  Receive Date: 20110126
  Receipt Date: 20110124
  Transmission Date: 20110831
  Serious: Yes (Hospitalization)
  Sender: FDA-Public Use
  Company Number: CHPA2011ES01507

PATIENT
  Sex: Female

DRUGS (1)
  1. IBUHEXAL AKUT [Suspect]
     Dosage: UNK, UNK
     Route: 048

REACTIONS (2)
  - HOT FLUSH [None]
  - DYSKINESIA [None]
